FAERS Safety Report 12459129 (Version 2)
Quarter: 2016Q3

REPORT INFORMATION
  Report Type: Spontaneous
  Country: JP (occurrence: JP)
  Receive Date: 20160613
  Receipt Date: 20160728
  Transmission Date: 20161109
  Serious: Yes (Other)
  Sender: FDA-Public Use
  Company Number: JP-PAR PHARMACEUTICAL COMPANIES-2016SCPR015525

PATIENT

DRUGS (6)
  1. VALPROATE SODIUM. [Concomitant]
     Active Substance: VALPROATE SODIUM
     Indication: EPILEPSY
     Dosage: UNK, UNKNOWN
     Route: 065
  2. LAMOTRIGINE. [Suspect]
     Active Substance: LAMOTRIGINE
     Indication: EPILEPSY
     Dosage: UNK UNK, UNKNOWN
     Route: 065
  3. KETALAR [Suspect]
     Active Substance: KETAMINE HYDROCHLORIDE
     Indication: SEDATION
     Dosage: UNK UNK, UNKNOWN
     Route: 065
  4. CLOBAZAM [Concomitant]
     Active Substance: CLOBAZAM
     Indication: EPILEPSY
     Dosage: UNK, UNKNOWN
     Route: 065
  5. MIDAZOLAM [Suspect]
     Active Substance: MIDAZOLAM\MIDAZOLAM HYDROCHLORIDE
     Indication: SEDATION
     Dosage: UNK UNK, UNKNOWN
     Route: 065
  6. TOPIRAMATE. [Concomitant]
     Active Substance: TOPIRAMATE
     Indication: EPILEPSY
     Dosage: UNK, UNKNOWN
     Route: 065

REACTIONS (8)
  - Drug reaction with eosinophilia and systemic symptoms [Recovering/Resolving]
  - Condition aggravated [Unknown]
  - Hypothyroidism [Recovered/Resolved]
  - Cytomegalovirus infection [Unknown]
  - Epstein-Barr virus infection [Unknown]
  - Human herpesvirus 6 infection [Unknown]
  - Hyperthyroidism [Recovering/Resolving]
  - Disseminated intravascular coagulation [Unknown]
